FAERS Safety Report 21564243 (Version 1)
Quarter: 2022Q4

REPORT INFORMATION
  Report Type: Spontaneous
  Country: RO (occurrence: RO)
  Receive Date: 20221108
  Receipt Date: 20221108
  Transmission Date: 20230113
  Serious: Yes (Other)
  Sender: FDA-Public Use
  Company Number: RO-PFIZER INC-PV202200091417

PATIENT
  Age: 53 Year
  Sex: Male

DRUGS (2)
  1. ENBREL [Suspect]
     Active Substance: ETANERCEPT
     Indication: Ankylosing spondylitis
     Dosage: 50 GRAM, QWK
     Route: 065
     Dates: start: 2014, end: 201712
  2. ENBREL [Suspect]
     Active Substance: ETANERCEPT
     Indication: Arthropathy
     Dosage: UNK
     Route: 065

REACTIONS (3)
  - Hip arthroplasty [Unknown]
  - Loss of therapeutic response [Unknown]
  - Granulomatous dermatitis [Unknown]

NARRATIVE: CASE EVENT DATE: 20140101
